FAERS Safety Report 7218930-4 (Version None)
Quarter: 2011Q1

REPORT INFORMATION
  Report Type: 
  Country: None (occurrence: None)
  Receive Date: 20110111
  Receipt Date: 20110105
  Transmission Date: 20110831
  Serious: Yes (Other)
  Sender: FDA-Public Use
  Company Number: US-ASTRAZENECA-2007UW19288

PATIENT
  Sex: Male
  Weight: 98.4 kg

DRUGS (9)
  1. LEXAPRO [Concomitant]
  2. SEROQUEL [Suspect]
     Indication: SCHIZOPHRENIA
     Route: 048
     Dates: start: 20030125, end: 20100101
  3. SEROQUEL [Suspect]
     Indication: BIPOLAR DISORDER
     Route: 048
     Dates: start: 20030125, end: 20100101
  4. DILTIAZEM [Concomitant]
     Dates: start: 20030128
  5. LIPITOR [Concomitant]
     Dates: start: 20030128
  6. VIOXX [Concomitant]
     Dates: start: 20030128
  7. ATENOLOL [Concomitant]
     Dates: start: 20030114
  8. TRAZODONE [Concomitant]
     Dates: start: 20030121
  9. CLONAZEPAM [Concomitant]
     Dates: start: 20030128

REACTIONS (5)
  - NEUROPATHY PERIPHERAL [None]
  - CRYING [None]
  - DIABETES MELLITUS [None]
  - STENT PLACEMENT [None]
  - GASTROINTESTINAL HAEMORRHAGE [None]
